FAERS Safety Report 17274132 (Version 3)
Quarter: 2020Q1

REPORT INFORMATION
  Report Type: Spontaneous
  Country: US (occurrence: US)
  Receive Date: 20200115
  Receipt Date: 20200228
  Transmission Date: 20200409
  Serious: Yes (Hospitalization)
  Sender: FDA-Public Use
  Company Number: US-VERTEX PHARMACEUTICALS-2020-000252

PATIENT
  Age: 10 Year
  Sex: Male

DRUGS (14)
  1. PULMOZYME [Concomitant]
     Active Substance: DORNASE ALFA
     Dosage: 2.5 MG, BID
  2. MIRALAX [Concomitant]
     Active Substance: POLYETHYLENE GLYCOL 3350
     Indication: CONSTIPATION
     Dosage: 17 GRAM, QD
     Route: 048
  3. QVAR [Concomitant]
     Active Substance: BECLOMETHASONE DIPROPIONATE
     Dosage: 2 PUFF BID
  4. METHYLPHENIDATE HYDROCHLORIDE. [Concomitant]
     Active Substance: METHYLPHENIDATE HYDROCHLORIDE
     Dosage: 18 MG, QAM
     Route: 048
  5. ACTIGALL [Concomitant]
     Active Substance: URSODIOL
     Dosage: 4.5 MILLILITER, BID
  6. PERIACTIN [Concomitant]
     Active Substance: CYPROHEPTADINE HYDROCHLORIDE
     Dosage: 4 MILLIGRAM, QPM
     Route: 048
  7. KAPVAY [Concomitant]
     Active Substance: CLONIDINE HYDROCHLORIDE
     Dosage: 2 MILLIGRAM, BID
     Route: 048
  8. CLARITIN [Concomitant]
     Active Substance: LORATADINE
     Dosage: 5 MG, QD
     Route: 048
  9. SODIUM CHLORIDE. [Concomitant]
     Active Substance: SODIUM CHLORIDE
     Dosage: 3 MILLILITER, BID
  10. PROAIR HFA [Concomitant]
     Active Substance: ALBUTEROL SULFATE
     Dosage: 2 PUFF EVERY 4 HOUR PRN
  11. KENALOG [SALICYLIC ACID;TRIAMCINOLONE ACETONIDE] [Concomitant]
     Active Substance: SALICYLIC ACID\TRIAMCINOLONE ACETONIDE
     Dosage: UNK UNK, BID
     Route: 061
  12. PROTONIX [OMEPRAZOLE] [Concomitant]
     Active Substance: OMEPRAZOLE
     Indication: GASTROOESOPHAGEAL REFLUX DISEASE
     Dosage: 20 MG, QD
     Route: 048
  13. FERROUS SULFATE. [Concomitant]
     Active Substance: FERROUS SULFATE
     Dosage: 1 325 MG TABLET (65 MG IRON), BID
     Route: 048
  14. KALYDECO [Suspect]
     Active Substance: IVACAFTOR
     Indication: CYSTIC FIBROSIS
     Dosage: 150 MG, BID
     Route: 048
     Dates: start: 20180807

REACTIONS (1)
  - Faecaloma [Recovered/Resolved]

NARRATIVE: CASE EVENT DATE: 201912
